FAERS Safety Report 23327748 (Version 1)
Quarter: 2023Q4

REPORT INFORMATION
  Report Type: Spontaneous
  Country: PT (occurrence: PT)
  Receive Date: 20231221
  Receipt Date: 20231221
  Transmission Date: 20240110
  Serious: Yes (Hospitalization, Other)
  Sender: FDA-Public Use
  Company Number: PT-FreseniusKabi-FK202320679

PATIENT
  Age: 32 Year
  Sex: Female

DRUGS (2)
  1. MAGNESIUM SULFATE [Suspect]
     Active Substance: MAGNESIUM SULFATE\MAGNESIUM SULFATE HEPTAHYDRATE
     Indication: HELLP syndrome
     Dosage: 4 G BOLUS FOLLOWED BY PERFUSION 2 GR/H
  2. MAGNESIUM SULFATE [Suspect]
     Active Substance: MAGNESIUM SULFATE\MAGNESIUM SULFATE HEPTAHYDRATE
     Indication: Pre-eclampsia

REACTIONS (6)
  - Asthenia [Recovered/Resolved]
  - Dysarthria [Recovered/Resolved]
  - Paresis [Recovered/Resolved]
  - Visual impairment [Recovered/Resolved]
  - Bradycardia [Recovered/Resolved]
  - Maternal exposure during delivery [Unknown]
